FAERS Safety Report 10102589 (Version 2)
Quarter: 2014Q2

REPORT INFORMATION
  Report Type: Other
  Country: US (occurrence: US)
  Receive Date: 20140424
  Receipt Date: 20140627
  Transmission Date: 20141212
  Serious: Yes (Hospitalization, Other)
  Sender: FDA-Public Use
  Company Number: US-GSKPPD-2014GSK000244

PATIENT
  Age: 63 Year
  Sex: Male
  Weight: 86.26 kg

DRUGS (2)
  1. AVANDIA [Suspect]
     Indication: DIABETES MELLITUS
     Route: 048
     Dates: start: 20020304, end: 20050805
  2. AVANDAMET [Suspect]
     Indication: DIABETES MELLITUS
     Dosage: 4/500MG
     Route: 048
     Dates: start: 20040301, end: 20060117

REACTIONS (1)
  - Coronary artery bypass [Recovered/Resolved]
